FAERS Safety Report 18134735 (Version 1)
Quarter: 2020Q3

REPORT INFORMATION
  Report Type: Spontaneous
  Country: US (occurrence: US)
  Receive Date: 20200810
  Receipt Date: 20200810
  Transmission Date: 20201103
  Serious: Yes (Hospitalization)
  Sender: FDA-Public Use
  Company Number: None

PATIENT
  Age: 53 Year
  Sex: Male

DRUGS (2)
  1. SPRYCEL [Suspect]
     Active Substance: DASATINIB
     Indication: CHRONIC MYELOID LEUKAEMIA
     Route: 048
     Dates: start: 20200417
  2. PROTONIX, ALLEGRA, XANAX, XARELTO [Concomitant]

REACTIONS (2)
  - Nephrolithiasis [None]
  - Atrial fibrillation [None]

NARRATIVE: CASE EVENT DATE: 20200711
